FAERS Safety Report 13917541 (Version 4)
Quarter: 2017Q3

REPORT INFORMATION
  Report Type: Spontaneous
  Country: US (occurrence: US)
  Receive Date: 20170829
  Receipt Date: 20170925
  Transmission Date: 20171127
  Serious: No
  Sender: FDA-Public Use
  Company Number: US-STRONGBRIDGE BIOPHARMA-SR-KEV-2017-139

PATIENT
  Age: 58 Year
  Sex: Female

DRUGS (3)
  1. LOMOTIL [Concomitant]
     Active Substance: ATROPINE SULFATE\DIPHENOXYLATE HYDROCHLORIDE
     Indication: INJURY
  2. KEVEYIS [Suspect]
     Active Substance: DICHLORPHENAMIDE
     Indication: PRODUCT USED FOR UNKNOWN INDICATION
     Route: 048
     Dates: start: 20170428
  3. METFORMIN [Suspect]
     Active Substance: METFORMIN HYDROCHLORIDE
     Indication: PRODUCT USED FOR UNKNOWN INDICATION

REACTIONS (25)
  - Injury [Unknown]
  - Drug dose omission [Unknown]
  - Hypokalaemia [Unknown]
  - Migraine [Not Recovered/Not Resolved]
  - Visual impairment [Unknown]
  - Musculoskeletal discomfort [Unknown]
  - Bradycardia [Unknown]
  - Blood potassium decreased [Not Recovered/Not Resolved]
  - Depressed mood [Not Recovered/Not Resolved]
  - Glucose tolerance impaired [Unknown]
  - Carpal tunnel syndrome [Unknown]
  - Disease recurrence [Unknown]
  - Weight decreased [Recovered/Resolved]
  - Dysarthria [Unknown]
  - Weight decreased [Unknown]
  - Nasopharyngeal neoplasm benign [Unknown]
  - Fatigue [Not Recovered/Not Resolved]
  - Diarrhoea [Unknown]
  - Hypotension [Unknown]
  - Muscle spasms [Not Recovered/Not Resolved]
  - Joint instability [Unknown]
  - Fall [Unknown]
  - Vertigo [Not Recovered/Not Resolved]
  - Weight fluctuation [Not Recovered/Not Resolved]
  - Decreased appetite [Not Recovered/Not Resolved]

NARRATIVE: CASE EVENT DATE: 2017
